FAERS Safety Report 5003985-8 (Version None)
Quarter: 2006Q2

REPORT INFORMATION
  Report Type: 
  Country: None (occurrence: None)
  Receive Date: 20060515
  Receipt Date: 20060515
  Transmission Date: 20061013
  Serious: Yes (Other)
  Sender: FDA-Public Use
  Company Number: None

PATIENT
  Age: 49 Year
  Sex: Female
  Weight: 56.6996 kg

DRUGS (4)
  1. ZICAM COLD REMEDY   ZICAM LLC [Suspect]
     Indication: HYPERSENSITIVITY
     Dosage: 1 SPRAY PER NOSTRIL  1 PER DAY  NASAL 2 OR 3 TIMES
     Route: 045
     Dates: start: 20060201
  2. ZICAM COLD REMEDY   ZICAM LLC [Suspect]
     Indication: NASAL CONGESTION
     Dosage: 1 SPRAY PER NOSTRIL  1 PER DAY  NASAL 2 OR 3 TIMES
     Route: 045
     Dates: start: 20060201
  3. ZICAM COLD REMEDY   ZICAM LLC [Suspect]
     Indication: NASOPHARYNGITIS
     Dosage: 1 SPRAY PER NOSTRIL  1 PER DAY  NASAL 2 OR 3 TIMES
     Route: 045
     Dates: start: 20060201
  4. ZICAM COLD REMEDY   ZICAM LLC [Suspect]
     Dosage: 1 SPRAY PER NOSTRIL   1 PER DAY   NASAL
     Route: 045
     Dates: start: 20051201, end: 20060401

REACTIONS (3)
  - CHEST PAIN [None]
  - EXCITABILITY [None]
  - HYPOSMIA [None]
